FAERS Safety Report 9353753 (Version 1)
Quarter: 2013Q2

REPORT INFORMATION
  Report Type: Spontaneous
  Country: US (occurrence: None)
  Receive Date: 20130617
  Receipt Date: 20130617
  Transmission Date: 20140414
  Serious: Yes (Disabling)
  Sender: FDA-Public Use
  Company Number: None

PATIENT
  Age: 55 Year
  Sex: Male
  Weight: 90.72 kg

DRUGS (2)
  1. GENTAMICIN [Suspect]
     Indication: PROPHYLAXIS
     Route: 030
     Dates: start: 20130116, end: 20130116
  2. GENTAMICIN [Suspect]
     Indication: BIOPSY PROSTATE
     Route: 030
     Dates: start: 20130116, end: 20130116

REACTIONS (5)
  - Vertigo [None]
  - Tinnitus [None]
  - Vestibular disorder [None]
  - Deafness [None]
  - Mental impairment [None]
